FAERS Safety Report 10339933 (Version 1)
Quarter: 2014Q3

REPORT INFORMATION
  Report Type: Spontaneous
  Country: IT (occurrence: None)
  Receive Date: 20140722
  Receipt Date: 20140722
  Transmission Date: 20150326
  Serious: Yes (Other)
  Sender: FDA-Public Use
  Company Number: AUR-APL-2014-07793

PATIENT
  Sex: Female

DRUGS (1)
  1. AMOXICILLIN+CLAVULANIC ACID (AMOXICILLIN, CLAVULANIC ACID) UNKNOWN, UNKNOWN [Suspect]
     Active Substance: AMOXICILLIN\CLAVULANIC ACID
     Indication: PRODUCT USED FOR UNKNOWN INDICATION

REACTIONS (6)
  - Eyelid oedema [None]
  - Chest discomfort [None]
  - Pruritus generalised [None]
  - Vomiting [None]
  - Nausea [None]
  - Urticaria [None]

NARRATIVE: CASE EVENT DATE: 20130629
